FAERS Safety Report 10791826 (Version 2)
Quarter: 2016Q3

REPORT INFORMATION
  Report Type: Report from Study
  Country: US (occurrence: US)
  Receive Date: 20150213
  Receipt Date: 20160819
  Transmission Date: 20161109
  Serious: Yes (Other)
  Sender: FDA-Public Use
  Company Number: US-CIPLA LTD.-2015US00966

PATIENT

DRUGS (3)
  1. I-METAIODOBENZYLGUANIDINE [Suspect]
     Active Substance: IOBENGUANE
     Indication: NEUROBLASTOMA
     Dosage: 555 OR 666 MBQ/KG ON DAY 1
     Route: 042
  2. IRINOTECAN [Suspect]
     Active Substance: IRINOTECAN
     Indication: NEUROBLASTOMA
     Dosage: 50 MG/M2, OVER 60-90 MINS ON DAYS 0-4
     Route: 042
  3. VINCRISTINE [Suspect]
     Active Substance: VINCRISTINE
     Indication: NEUROBLASTOMA
     Dosage: 2 MG/M2, ,BOLUS ON DAY 0
     Route: 042

REACTIONS (1)
  - Disease progression [Unknown]
